FAERS Safety Report 22285049 (Version 1)
Quarter: 2023Q2

REPORT INFORMATION
  Report Type: Spontaneous
  Country: US (occurrence: US)
  Receive Date: 20230504
  Receipt Date: 20230504
  Transmission Date: 20230722
  Serious: No
  Sender: FDA-Public Use
  Company Number: US-BoehringerIngelheim-2023-BI-235578

PATIENT
  Age: 68 Year
  Sex: Female

DRUGS (2)
  1. GLYXAMBI [Suspect]
     Active Substance: EMPAGLIFLOZIN\LINAGLIPTIN
     Indication: Product used for unknown indication
     Dates: start: 20200624
  2. JARDIANCE [Suspect]
     Active Substance: EMPAGLIFLOZIN
     Indication: Product used for unknown indication
     Dosage: 10
     Dates: start: 20220101

REACTIONS (3)
  - Glycosylated haemoglobin increased [Unknown]
  - Duplicate therapy error [Unknown]
  - Off label use [Unknown]

NARRATIVE: CASE EVENT DATE: 20230503
